FAERS Safety Report 11452297 (Version 1)
Quarter: 2015Q3

REPORT INFORMATION
  Report Type: Spontaneous
  Country: US (occurrence: US)
  Receive Date: 20150831
  Receipt Date: 20150831
  Transmission Date: 20151125
  Serious: No
  Sender: FDA-Public Use
  Company Number: US-ELI_LILLY_AND_COMPANY-US200907003818

PATIENT
  Age: 61 Year
  Sex: Female

DRUGS (1)
  1. CYMBALTA [Suspect]
     Active Substance: DULOXETINE HYDROCHLORIDE
     Indication: FIBROMYALGIA
     Dosage: 60 MG, DAILY (1/D)
     Dates: start: 200906

REACTIONS (12)
  - Rhinorrhoea [Unknown]
  - Headache [Recovering/Resolving]
  - Somnolence [Unknown]
  - Hearing impaired [Recovering/Resolving]
  - Constipation [Unknown]
  - Dry mouth [Unknown]
  - Fibromyalgia [Recovered/Resolved]
  - Flatulence [Unknown]
  - Heart rate increased [Unknown]
  - Drug ineffective [Recovering/Resolving]
  - Nausea [Unknown]
  - Hypertonic bladder [Unknown]

NARRATIVE: CASE EVENT DATE: 2009
